FAERS Safety Report 5715495-0 (Version None)
Quarter: 2008Q2

REPORT INFORMATION
  Report Type: 
  Country: None (occurrence: None)
  Receive Date: 20080422
  Receipt Date: 20080407
  Transmission Date: 20081010
  Serious: Yes (Hospitalization, Other)
  Sender: FDA-Public Use
  Company Number: 2008S1004377

PATIENT
  Age: 6 Year
  Sex: Male
  Weight: 22 kg

DRUGS (1)
  1. ALBUTEROL [Suspect]
     Indication: ASTHMA
     Dosage: 2.5 MG; EVERY 4 HOURS; INHALATION
     Route: 055

REACTIONS (8)
  - BLOOD GLUCOSE INCREASED [None]
  - GLYCOSURIA [None]
  - HEART RATE INCREASED [None]
  - HYPERVENTILATION [None]
  - INTERCOSTAL RETRACTION [None]
  - METABOLIC ACIDOSIS [None]
  - RESPIRATORY DISTRESS [None]
  - TACHYPNOEA [None]
